FAERS Safety Report 4295049-6 (Version None)
Quarter: 2004Q1

REPORT INFORMATION
  Report Type: 
  Country: None (occurrence: None)
  Receive Date: 20040213
  Receipt Date: 20040202
  Transmission Date: 20041129
  Serious: Yes (Death)
  Sender: FDA-Public Use
  Company Number: 2004S1000352

PATIENT
  Age: 78 Year
  Sex: Male

DRUGS (12)
  1. CLOZAPINE [Suspect]
     Indication: SCHIZOPHRENIA
  2. SELEGILINE HCL [Concomitant]
  3. RANITIDINE [Concomitant]
  4. SORBITOL [Concomitant]
  5. METOPROLOL [Concomitant]
  6. DOCUSATE [Concomitant]
  7. BROMOCRIPTINE MESYLATE [Concomitant]
  8. CARBIDOPA AND LEVODOPA [Concomitant]
  9. DIAZEPAM [Concomitant]
  10. ACETAMINOPHEN [Concomitant]
  11. BISACODYL [Concomitant]
  12. MORPHINE [Concomitant]

REACTIONS (1)
  - ARRHYTHMIA [None]
